FAERS Safety Report 8262096-9 (Version None)
Quarter: 2012Q2

REPORT INFORMATION
  Report Type: 
  Country: None (occurrence: None)
  Receive Date: 20120405
  Receipt Date: 20120329
  Transmission Date: 20120825
  Serious: Yes (Hospitalization)
  Sender: FDA-Public Use
  Company Number: PHHO2012FR005145

PATIENT
  Sex: Female
  Weight: 81 kg

DRUGS (10)
  1. AFINITOR [Suspect]
     Indication: NON-HODGKIN'S LYMPHOMA
     Dosage: 5 MG, QD
     Route: 048
     Dates: start: 20120321, end: 20120327
  2. PROZAC [Concomitant]
     Dosage: 10 MG, UNK
  3. LANSOPRAZOLE [Concomitant]
     Dosage: 15 MG, UNK
  4. BIPERIDYS [Concomitant]
     Dosage: 15 MG, UNK
  5. RITUXIMAB [Suspect]
     Indication: NON-HODGKIN'S LYMPHOMA
     Dosage: UNK
     Dates: start: 20120321
  6. ATORVASTATIN [Concomitant]
     Dosage: 10 MG, UNK
  7. LEXOMIL [Concomitant]
  8. RAMIPRIL [Concomitant]
     Dosage: 2.5 MG, UNK
  9. LEVOTHYROXINE SODIUM [Concomitant]
  10. DESLORATADINE [Concomitant]

REACTIONS (1)
  - FEBRILE NEUTROPENIA [None]
